FAERS Safety Report 4825145-3 (Version None)
Quarter: 2005Q4

REPORT INFORMATION
  Report Type: 
  Country: None (occurrence: None)
  Receive Date: 20051109
  Receipt Date: 20051109
  Transmission Date: 20060501
  Serious: Yes (Hospitalization)
  Sender: FDA-Public Use
  Company Number: None

PATIENT
  Age: 35 Year
  Sex: Female
  Weight: 55 kg

DRUGS (2)
  1. LITHIUM 300MG [Suspect]
     Indication: MENTAL DISORDER
     Dosage: 300 MG PO TID
     Route: 048
     Dates: start: 20050920, end: 20050921
  2. TOPAMAX [Concomitant]

REACTIONS (1)
  - CONVULSION [None]
